FAERS Safety Report 7396014-2 (Version None)
Quarter: 2011Q2

REPORT INFORMATION
  Report Type: 
  Country: None (occurrence: None)
  Receive Date: 20110406
  Receipt Date: 20110328
  Transmission Date: 20111010
  Serious: Yes (Death)
  Sender: FDA-Public Use
  Company Number: SY-ELI_LILLY_AND_COMPANY-SY201104001048

PATIENT
  Age: 65 Year
  Sex: Female

DRUGS (1)
  1. HUMALOG MIX 50/50 [Suspect]
     Indication: DIABETES MELLITUS
     Dosage: 43 IU, UNK
     Route: 058
     Dates: start: 20110317, end: 20110321

REACTIONS (1)
  - DEATH [None]
